FAERS Safety Report 7500471-8 (Version None)
Quarter: 2011Q2

REPORT INFORMATION
  Report Type: 
  Country: None (occurrence: None)
  Receive Date: 20110524
  Receipt Date: 20110421
  Transmission Date: 20111010
  Serious: No
  Sender: FDA-Public Use
  Company Number: US-BRISTOL-MYERS SQUIBB COMPANY-15674757

PATIENT
  Sex: Male

DRUGS (1)
  1. ONGLYZA [Suspect]
     Dosage: ONGLYZA ABOUT TWO-THREE WEEKS AGO
     Dates: start: 20110101

REACTIONS (2)
  - OROPHARYNGEAL PAIN [None]
  - LACRIMATION INCREASED [None]
